FAERS Safety Report 6905825-6 (Version None)
Quarter: 2010Q3

REPORT INFORMATION
  Report Type: 
  Country: None (occurrence: None)
  Receive Date: 20100802
  Receipt Date: 20100802
  Transmission Date: 20110219
  Serious: No
  Sender: FDA-Public Use
  Company Number: None

PATIENT
  Age: 56 Year
  Sex: Female
  Weight: 68.0396 kg

DRUGS (2)
  1. HYDROCODONE BITARTRATE AND ACETAMINOPHEN [Suspect]
     Indication: GUILLAIN-BARRE SYNDROME
     Dosage: 1 TABLET 1 TAB PER NIGHT ORAL
     Route: 048
     Dates: start: 20100115, end: 20100415
  2. HYDROCODONE BITARTRATE AND ACETAMINOPHEN [Suspect]
     Indication: NEURALGIA
     Dosage: 1 TABLET 1 TAB PER NIGHT ORAL
     Route: 048
     Dates: start: 20100115, end: 20100415

REACTIONS (4)
  - INADEQUATE ANALGESIA [None]
  - NO THERAPEUTIC RESPONSE [None]
  - PAIN [None]
  - PRODUCT SUBSTITUTION ISSUE [None]
